FAERS Safety Report 13839214 (Version 3)
Quarter: 2017Q4

REPORT INFORMATION
  Report Type: Report from Study
  Country: US (occurrence: US)
  Receive Date: 20170807
  Receipt Date: 20171103
  Transmission Date: 20180320
  Serious: Yes (Death, Hospitalization, Other)
  Sender: FDA-Public Use
  Company Number: US-BAYER-2017-145844

PATIENT
  Age: 58 Year
  Sex: Female
  Weight: 58.96 kg

DRUGS (14)
  1. LINZESS [Concomitant]
     Active Substance: LINACLOTIDE
     Dosage: UNK
  2. STIVARGA [Suspect]
     Active Substance: REGORAFENIB
     Indication: METASTASES TO THE MEDIASTINUM
  3. POTASSIUM CHLORIDE. [Concomitant]
     Active Substance: POTASSIUM CHLORIDE
  4. STIVARGA [Suspect]
     Active Substance: REGORAFENIB
     Indication: METASTASES TO THE RESPIRATORY SYSTEM
  5. BIOTIN [Concomitant]
     Active Substance: BIOTIN
     Dosage: UNK
  6. CALCIUM [Concomitant]
     Active Substance: CALCIUM
     Dosage: UNK
  7. HYDROCODONE [Concomitant]
     Active Substance: HYDROCODONE
     Dosage: TAKING 6 TO 8DF PER DAY
  8. STIVARGA [Suspect]
     Active Substance: REGORAFENIB
     Indication: COLON CANCER
     Dosage: DAILY DOSE 160 MG
     Route: 048
     Dates: start: 20170404, end: 2017
  9. VITAMIN B12 [Concomitant]
     Active Substance: CYANOCOBALAMIN
     Dosage: UNK
  10. OXAZEPAM. [Concomitant]
     Active Substance: OXAZEPAM
     Dosage: UNK
  11. STIVARGA [Suspect]
     Active Substance: REGORAFENIB
     Indication: METASTASES TO GASTROINTESTINAL TRACT
  12. STIVARGA [Suspect]
     Active Substance: REGORAFENIB
     Indication: METASTASES TO LUNG
  13. BENZOCAINE. [Concomitant]
     Active Substance: BENZOCAINE
     Dosage: UNK
     Route: 061
  14. CITALOPRAM [Concomitant]
     Active Substance: CITALOPRAM HYDROBROMIDE
     Dosage: UNK

REACTIONS (11)
  - Diarrhoea [None]
  - Colon cancer metastatic [None]
  - Fatigue [None]
  - Alopecia [None]
  - Gastrointestinal motility disorder [None]
  - Rectal haemorrhage [Fatal]
  - Metastases to liver [None]
  - Musculoskeletal chest pain [Recovering/Resolving]
  - Urinary tract obstruction [None]
  - Abdominal pain [Recovering/Resolving]
  - Infection [None]
